FAERS Safety Report 12402021 (Version 11)
Quarter: 2017Q3

REPORT INFORMATION
  Report Type: Spontaneous
  Country: US (occurrence: US)
  Receive Date: 20160525
  Receipt Date: 20170913
  Transmission Date: 20171127
  Serious: Yes (Hospitalization, Other)
  Sender: FDA-Public Use
  Company Number: US-PFIZER INC-2016273266

PATIENT
  Age: 69 Year
  Sex: Female

DRUGS (2)
  1. XELJANZ [Suspect]
     Active Substance: TOFACITINIB CITRATE
     Indication: RHEUMATOID ARTHRITIS
     Dosage: 5 MG, 2X/DAY
  2. XELJANZ [Suspect]
     Active Substance: TOFACITINIB CITRATE
     Indication: ALOPECIA

REACTIONS (10)
  - Cerebrovascular accident [Unknown]
  - Alopecia [Unknown]
  - Spinal fracture [Unknown]
  - Gastrointestinal haemorrhage [Not Recovered/Not Resolved]
  - Urinary tract infection [Not Recovered/Not Resolved]
  - Rheumatoid nodule [Unknown]
  - Back injury [Unknown]
  - Rib fracture [Unknown]
  - Condition aggravated [Unknown]
  - Fall [Unknown]

NARRATIVE: CASE EVENT DATE: 2015
